FAERS Safety Report 12109980 (Version 4)
Quarter: 2016Q4

REPORT INFORMATION
  Report Type: Spontaneous
  Country: US (occurrence: US)
  Receive Date: 20160224
  Receipt Date: 20161026
  Transmission Date: 20170206
  Serious: No
  Sender: FDA-Public Use
  Company Number: US-PFIZER INC-2015295425

PATIENT
  Age: 69 Year
  Sex: Male
  Weight: 77 kg

DRUGS (33)
  1. VALERIAN [Concomitant]
     Active Substance: VALERIAN
     Dosage: 1 DF, AS NEEDED (DAILY)
     Route: 048
  2. WARFARIN [Suspect]
     Active Substance: WARFARIN
     Dosage: 7.5 MG, 1X/DAY
     Dates: start: 201504
  3. MELATONIN [Concomitant]
     Active Substance: MELATONIN
     Dosage: 10 MG, UNK
     Route: 048
  4. SUTENT [Suspect]
     Active Substance: SUNITINIB MALATE
     Dosage: 50 MG, CYCLIC  (DAILY FOR 14 DAYS; THEN 7 DAYS OFF)
     Route: 048
  5. LOPERAMIDE [Concomitant]
     Active Substance: LOPERAMIDE
     Indication: DIARRHOEA
     Dosage: 2 MG, AS NEEDED (QHS)
     Route: 048
  6. ZOFRAN [Concomitant]
     Active Substance: ONDANSETRON HYDROCHLORIDE
     Indication: VOMITING
  7. COUMADIN [Concomitant]
     Active Substance: WARFARIN SODIUM
     Dosage: 7.5 MG, UNK
     Route: 048
  8. SUTENT [Suspect]
     Active Substance: SUNITINIB MALATE
     Dosage: 50 MG, CYCLIC (2 WEEKS ON/1 WEEK OFF)
  9. SUTENT [Suspect]
     Active Substance: SUNITINIB MALATE
     Dosage: 12.5 MG, CYCLIC, (4 PER DAY, 2 WEEKS ON, ONE WEEK OFF)
     Route: 048
  10. SUTENT [Suspect]
     Active Substance: SUNITINIB MALATE
     Dosage: 50 MG, CYCLIC (14-DAYS 50 MG A DAY 7-DAYS OFF)
     Dates: start: 20150904
  11. WARFARIN [Suspect]
     Active Substance: WARFARIN
     Dosage: 5 MG, 1X/DAY
     Dates: start: 201504
  12. VITAMIN D3 [Concomitant]
     Active Substance: CHOLECALCIFEROL
     Dosage: 5000 IU, 1X/DAY
  13. VITAMIN D3 [Concomitant]
     Active Substance: CHOLECALCIFEROL
     Dosage: 10000 IU, WEEKLY (5000 IU 5X A WEEK)
  14. CHONDROITIN, GLUCOSAMINE [Concomitant]
     Active Substance: CHONDROITIN SULFATE (BOVINE)\GLUCOSAMINE SULFATE
     Dosage: UNK, 2 PER DAY
  15. NEXIUM [Concomitant]
     Active Substance: ESOMEPRAZOLE MAGNESIUM
     Indication: ABDOMINAL DISCOMFORT
     Dosage: 22.3 MG, AS NEEDED
     Dates: start: 2015
  16. MELATONIN [Concomitant]
     Active Substance: MELATONIN
     Dosage: 10 MG, 1X/DAY (QHS)
     Route: 048
  17. MIRACLE MOUTHWASH GT [Concomitant]
     Indication: STOMATITIS
     Dosage: MYLANTA 160 ML VISCOUS LIDOCAINE 160 ML DIPHENHYDRAMINE LIQUID 160 ML, SWISH + SWALLOW, AS NEEDED
     Route: 050
  18. MELATONIN [Concomitant]
     Active Substance: MELATONIN
     Dosage: 5 DF, WEEKLY (1 TABLET 5X A WEEK)
  19. SUTENT [Suspect]
     Active Substance: SUNITINIB MALATE
     Dosage: 50 MG, CYCLIC (12.5 MG X 4 CAPSULES, DAILY FOR 28 DAYS THEN 14 DAYS OFF)
     Route: 048
  20. WARFARIN [Suspect]
     Active Substance: WARFARIN
     Indication: RENAL CANCER
     Dosage: UNK (5 MG TABLET ONE DAY, ONE AND A HALF OF 5MG TABLET THE NEXT)
     Route: 048
  21. AMLODIPINE [Concomitant]
     Active Substance: AMLODIPINE BESYLATE
     Indication: HYPERTENSION
     Dosage: 5 MG, AS NEEDED DAILY
     Route: 048
  22. CHONDROITIN, GLUCOSAMINE [Concomitant]
     Active Substance: CHONDROITIN SULFATE (BOVINE)\GLUCOSAMINE SULFATE
     Dosage: 1 UNK, UNK [CHONDROITIN 1200 MG], [GLUCOSAMINE 1500 MG]
     Route: 048
  23. VALERIAN [Concomitant]
     Active Substance: VALERIAN
     Dosage: UNK, 1 PER DAY
     Route: 048
  24. ONDANSETRON [Concomitant]
     Active Substance: ONDANSETRON
     Indication: VOMITING
  25. CALCIUM/ VITAMIN D [Concomitant]
     Dosage: 1 DF, DAILY
     Route: 048
  26. TUMS [Concomitant]
     Active Substance: CALCIUM CARBONATE
     Indication: GASTROOESOPHAGEAL REFLUX DISEASE
     Dosage: UNK, AS NEEDED
     Dates: start: 2015
  27. SUTENT [Suspect]
     Active Substance: SUNITINIB MALATE
     Indication: RENAL CANCER
     Dosage: 37.5 MG, CYCLIC (12.5 MG X 3 CAPSULES, DAILY FOR 28 DAYS THEN 14 DAYS OFF)
     Route: 048
     Dates: start: 2015
  28. WARFARIN [Suspect]
     Active Substance: WARFARIN
     Dosage: 7.5 MG, ALTERNATE DAY (ALTERNATING WITH 5 MG DAILY)
     Route: 048
  29. VITAMIN D3 [Concomitant]
     Active Substance: CHOLECALCIFEROL
     Dosage: 2200 IU, 2X/DAY
     Route: 048
  30. ASTELIN SPRAY [Concomitant]
     Dosage: UNK
  31. ONDANSETRON [Concomitant]
     Active Substance: ONDANSETRON
     Indication: NAUSEA
     Dosage: 4 MG, AS NEEDED (Q8H)
     Route: 048
  32. ENOXAPARIN [Concomitant]
     Active Substance: ENOXAPARIN
     Dosage: (80MG / 0.8 ML SUBCUTANEOUS SOLUTION), 2X/DAY
     Route: 058
  33. ZOFRAN [Concomitant]
     Active Substance: ONDANSETRON HYDROCHLORIDE
     Indication: NAUSEA
     Dosage: 4 MG, AS NEEDED
     Route: 048

REACTIONS (14)
  - Myalgia [Not Recovered/Not Resolved]
  - Body height decreased [Unknown]
  - Flatulence [Not Recovered/Not Resolved]
  - Malaise [Not Recovered/Not Resolved]
  - Nasopharyngitis [Not Recovered/Not Resolved]
  - Joint stiffness [Recovered/Resolved]
  - Gastrointestinal sounds abnormal [Not Recovered/Not Resolved]
  - Fatigue [Not Recovered/Not Resolved]
  - Diarrhoea [Not Recovered/Not Resolved]
  - Skin discolouration [Not Recovered/Not Resolved]
  - Decreased appetite [Not Recovered/Not Resolved]
  - Abdominal discomfort [Not Recovered/Not Resolved]
  - Gastrooesophageal reflux disease [Not Recovered/Not Resolved]
  - Arthralgia [Not Recovered/Not Resolved]

NARRATIVE: CASE EVENT DATE: 201509
